FAERS Safety Report 15395245 (Version 3)
Quarter: 2018Q4

REPORT INFORMATION
  Report Type: Spontaneous
  Country: US (occurrence: US)
  Receive Date: 20180918
  Receipt Date: 20181106
  Transmission Date: 20190204
  Serious: No
  Sender: FDA-Public Use
  Company Number: US-PFIZER INC-2018374159

PATIENT
  Age: 58 Year
  Sex: Female
  Weight: 70 kg

DRUGS (2)
  1. NEURONTIN [Suspect]
     Active Substance: GABAPENTIN
     Dosage: 600 MG, 1X/DAY (TWO 300MG CAPSULES, AT NIGHT)
     Route: 048
     Dates: start: 2017
  2. NEURONTIN [Suspect]
     Active Substance: GABAPENTIN
     Dosage: 300 MG, 1X/DAY

REACTIONS (9)
  - Mental disorder [Unknown]
  - Feeling abnormal [Unknown]
  - Lethargy [Unknown]
  - Withdrawal syndrome [Unknown]
  - Somnolence [Unknown]
  - Increased appetite [Unknown]
  - Hyperaesthesia [Unknown]
  - Intentional product misuse [Unknown]
  - Fatigue [Unknown]

NARRATIVE: CASE EVENT DATE: 2017
